FAERS Safety Report 18995785 (Version 2)
Quarter: 2025Q3

REPORT INFORMATION
  Report Type: Spontaneous
  Country: US (occurrence: US)
  Receive Date: 20210310
  Receipt Date: 20250701
  Transmission Date: 20251021
  Serious: Yes (Life-Threatening, Hospitalization, Other)
  Sender: AUROBINDO
  Company Number: US-MLMSERVICE-20210226-2742116-1

PATIENT
  Age: 73 Year
  Sex: Female

DRUGS (7)
  1. AMIODARONE HYDROCHLORIDE [Suspect]
     Active Substance: AMIODARONE HYDROCHLORIDE
     Indication: Torsade de pointes
     Route: 042
  2. ISOPROTERENOL [Suspect]
     Active Substance: ISOPROTERENOL
     Indication: Torsade de pointes
     Route: 042
  3. LIDOCAINE [Suspect]
     Active Substance: LIDOCAINE
     Indication: Torsade de pointes
     Route: 042
  4. MAGNESIUM [Suspect]
     Active Substance: MAGNESIUM
     Indication: Torsade de pointes
     Route: 042
  5. HYDROCHLOROTHIAZIDE [Concomitant]
     Active Substance: HYDROCHLOROTHIAZIDE
     Indication: Product used for unknown indication
     Dosage: 12.5 MILLIGRAM, ONCE A DAY
     Route: 065
  6. NEBIVOLOL [Concomitant]
     Active Substance: NEBIVOLOL
     Indication: Product used for unknown indication
     Dosage: 5 MILLIGRAM, ONCE A DAY
     Route: 065
  7. VALSARTAN [Concomitant]
     Active Substance: VALSARTAN
     Indication: Product used for unknown indication
     Dosage: 160 MILLIGRAM, ONCE A DAY
     Route: 065

REACTIONS (1)
  - Treatment failure [Recovered/Resolved]
